FAERS Safety Report 10094649 (Version 2)
Quarter: 2014Q3

REPORT INFORMATION
  Report Type: Spontaneous
  Country: US (occurrence: None)
  Receive Date: 20140418
  Receipt Date: 20140926
  Transmission Date: 20150326
  Serious: Yes (Other)
  Sender: FDA-Public Use
  Company Number: 2014-US-004428

PATIENT
  Age: 36 Year
  Sex: Female
  Weight: 90.2 kg

DRUGS (8)
  1. XYREM [Suspect]
     Active Substance: SODIUM OXYBATE
     Indication: NARCOLEPSY
     Route: 048
     Dates: start: 201402, end: 2014
  2. XYREM [Suspect]
     Active Substance: SODIUM OXYBATE
     Indication: CATAPLEXY
     Route: 048
     Dates: start: 201402, end: 2014
  3. BUPROPION (BUPROPION) [Concomitant]
     Active Substance: BUPROPION
  4. ESCITALOPRAM [Concomitant]
     Active Substance: ESCITALOPRAM OXALATE
  5. NEURONTIN [Concomitant]
     Active Substance: GABAPENTIN
  6. FISH OIL (FISH OIL) [Concomitant]
     Active Substance: FISH OIL
  7. XYREM [Suspect]
     Active Substance: SODIUM OXYBATE
     Indication: INSOMNIA
     Route: 048
     Dates: start: 201402, end: 2014
  8. MULTIVITAMIN (VITAMIN NOS) [Concomitant]

REACTIONS (4)
  - Glucose tolerance impaired [None]
  - Diabetes mellitus [None]
  - Thirst [None]
  - Impatience [None]

NARRATIVE: CASE EVENT DATE: 201404
